FAERS Safety Report 7935922-8 (Version None)
Quarter: 2011Q4

REPORT INFORMATION
  Report Type: 
  Country: None (occurrence: None)
  Receive Date: 20111123
  Receipt Date: 20111111
  Transmission Date: 20120403
  Serious: Yes (Hospitalization)
  Sender: FDA-Public Use
  Company Number: US-ELI_LILLY_AND_COMPANY-US201106007270

PATIENT
  Sex: Female

DRUGS (7)
  1. FORTEO [Suspect]
     Dosage: 20 UG, QD
  2. FORTEO [Suspect]
     Dosage: 20 UG, QD
  3. VITAMIN D [Concomitant]
     Dosage: UNK, QD
  4. CALCIUM CARBONATE [Concomitant]
     Indication: DYSPEPSIA
  5. CALCIUM [Concomitant]
  6. FORTEO [Suspect]
     Indication: OSTEOPOROSIS
     Dosage: 20 UG, QD
     Route: 065
  7. ASCORBIC ACID [Concomitant]
     Dosage: UNK, QD

REACTIONS (6)
  - RASH PRURITIC [None]
  - MUSCULOSKELETAL STIFFNESS [None]
  - CEREBROVASCULAR ACCIDENT [None]
  - HEADACHE [None]
  - DIZZINESS [None]
  - INJECTION SITE HAEMATOMA [None]
